FAERS Safety Report 5318699-4 (Version None)
Quarter: 2007Q2

REPORT INFORMATION
  Report Type: 
  Country: None (occurrence: None)
  Receive Date: 20070503
  Receipt Date: 20070503
  Transmission Date: 20071010
  Serious: No
  Sender: FDA-Public Use
  Company Number: None

PATIENT
  Age: 0 Year
  Sex: Female

DRUGS (1)
  1. AMOXICILLIN [Suspect]
     Dates: start: 20060429, end: 20060501

REACTIONS (22)
  - BLISTER [None]
  - CONVULSION [None]
  - CYTOLYTIC HEPATITIS [None]
  - DEHYDRATION [None]
  - ERYTHEMA [None]
  - EXFOLIATIVE RASH [None]
  - HEPATIC FAILURE [None]
  - HYPOTENSION [None]
  - HYPOTHERMIA [None]
  - HYPOXIA [None]
  - INFECTION [None]
  - JAUNDICE [None]
  - LIVER INJURY [None]
  - MENTAL STATUS CHANGES [None]
  - MULTI-ORGAN FAILURE [None]
  - OTITIS MEDIA [None]
  - PNEUMOTHORAX [None]
  - PYREXIA [None]
  - RASH GENERALISED [None]
  - TOXIC EPIDERMAL NECROLYSIS [None]
  - UPPER RESPIRATORY TRACT INFECTION [None]
  - URINARY TRACT INFECTION PSEUDOMONAL [None]
